FAERS Safety Report 25411244 (Version 1)
Quarter: 2025Q2

REPORT INFORMATION
  Report Type: Spontaneous
  Country: US (occurrence: US)
  Receive Date: 20250609
  Receipt Date: 20250609
  Transmission Date: 20250717
  Serious: No
  Sender: ROCHE
  Company Number: US-ROCHE-10000301307

PATIENT

DRUGS (6)
  1. XOLAIR [Suspect]
     Active Substance: OMALIZUMAB
     Indication: Product used for unknown indication
     Route: 065
  2. ZYRTEC [Concomitant]
     Active Substance: CETIRIZINE HYDROCHLORIDE
  3. MONTELUKAST [Concomitant]
     Active Substance: MONTELUKAST
  4. BENADRYL [Concomitant]
     Active Substance: DIPHENHYDRAMINE HYDROCHLORIDE
  5. PREDNISONE [Concomitant]
     Active Substance: PREDNISONE
  6. Cyclosporine MD [Concomitant]

REACTIONS (1)
  - Mental disorder [Unknown]
